FAERS Safety Report 4968014-0 (Version None)
Quarter: 2006Q1

REPORT INFORMATION
  Report Type: 
  Country: None (occurrence: None)
  Receive Date: 20060201
  Receipt Date: 20051003
  Transmission Date: 20060701
  Serious: No
  Sender: FDA-Public Use
  Company Number: 2005PV002972

PATIENT
  Age: 66 Year
  Sex: Male
  Weight: 97.977 kg

DRUGS (4)
  1. BYETTA [Suspect]
     Indication: DIABETES MELLITUS NON-INSULIN-DEPENDENT
     Dosage: 5 MCG;BID;SC
     Route: 058
     Dates: start: 20050921, end: 20051002
  2. GLUCOPHAGE [Concomitant]
  3. ZOCOR [Concomitant]
  4. ZESTRIL [Concomitant]

REACTIONS (3)
  - BLOOD GLUCOSE INCREASED [None]
  - DIZZINESS [None]
  - INJECTION SITE BRUISING [None]
